FAERS Safety Report 9552318 (Version 1)
Quarter: 2013Q3

REPORT INFORMATION
  Report Type: Spontaneous
  Country: US (occurrence: None)
  Receive Date: 20130724
  Receipt Date: 20130724
  Transmission Date: 20140515
  Serious: Yes (Hospitalization)
  Sender: FDA-Public Use
  Company Number: PHEH2013US001738

PATIENT
  Age: 65 Year
  Sex: Female

DRUGS (1)
  1. GLEEVEC (IMATINIB) [Suspect]
     Indication: CHRONIC MYELOID LEUKAEMIA
     Route: 048
     Dates: start: 20090109

REACTIONS (4)
  - Influenza [None]
  - Asthma [None]
  - Constipation [None]
  - Diarrhoea [None]
